FAERS Safety Report 5251434-7 (Version None)
Quarter: 2007Q1

REPORT INFORMATION
  Report Type: 
  Country: None (occurrence: None)
  Receive Date: 20070228
  Receipt Date: 20060428
  Transmission Date: 20070707
  Serious: Yes (Other)
  Sender: FDA-Public Use
  Company Number: US-GLAXOSMITHKLINE-A0604843A

PATIENT
  Age: 8 Year
  Sex: Female

DRUGS (1)
  1. LAMICTAL [Suspect]
     Indication: COMPLEX PARTIAL SEIZURES
     Dosage: 125MG TWICE PER DAY
     Route: 048

REACTIONS (2)
  - CONVULSION [None]
  - DRUG EFFECT DECREASED [None]
